FAERS Safety Report 18910990 (Version 1)
Quarter: 2021Q1

REPORT INFORMATION
  Report Type: Spontaneous
  Country: DE (occurrence: DE)
  Receive Date: 20210218
  Receipt Date: 20210218
  Transmission Date: 20210420
  Serious: Yes (Other)
  Sender: FDA-Public Use
  Company Number: DE-TOPROL-2021000017

PATIENT
  Age: 23 Year
  Sex: Female
  Weight: 86 kg

DRUGS (5)
  1. BETALOC [METOPROLOL SUCCINATE] [Suspect]
     Active Substance: METOPROLOL SUCCINATE
     Indication: GESTATIONAL HYPERTENSION
     Dosage: 95 [MG/D (BIS 47.5 ) ]/ INITIALLY 2X 47.5 MG/D
     Route: 048
  2. BETALOC [METOPROLOL SUCCINATE] [Suspect]
     Active Substance: METOPROLOL SUCCINATE
     Indication: GESTATIONAL HYPERTENSION
     Dosage: GW 29.1: 2X 23.75 MG/D
     Route: 048
  3. FOLIC ACID. [Concomitant]
     Active Substance: FOLIC ACID
     Indication: PROPHYLAXIS OF NEURAL TUBE DEFECT
     Route: 048
     Dates: start: 20191126, end: 20200616
  4. CANIFUG CREMOLUM [Concomitant]
     Indication: VULVOVAGINAL MYCOTIC INFECTION
     Route: 067
     Dates: start: 20200422, end: 20200427
  5. BELOC ZOK HERZ [Concomitant]
     Indication: GESTATIONAL HYPERTENSION
     Dosage: QD ORAL
     Route: 048
     Dates: start: 20200716, end: 20200804

REACTIONS (2)
  - Exposure during pregnancy [Recovered/Resolved]
  - Oligohydramnios [Recovered/Resolved]
